FAERS Safety Report 6695221-1 (Version None)
Quarter: 2010Q2

REPORT INFORMATION
  Report Type: 
  Country: None (occurrence: None)
  Receive Date: 20100423
  Receipt Date: 20100414
  Transmission Date: 20101027
  Serious: Yes (Other)
  Sender: FDA-Public Use
  Company Number: US-ABBOTT-10P-163-0638431-00

PATIENT
  Sex: Female
  Weight: 50.848 kg

DRUGS (4)
  1. HUMIRA [Suspect]
     Indication: RHEUMATOID ARTHRITIS
     Dates: end: 20050601
  2. HUMIRA [Suspect]
     Dosage: 1/2 INJECTION
     Dates: start: 20050601
  3. BENADRYL [Concomitant]
     Indication: INSOMNIA
  4. CLONAZEPAM [Concomitant]
     Indication: ANXIETY

REACTIONS (2)
  - ALOPECIA [None]
  - MOBILITY DECREASED [None]
